FAERS Safety Report 12720253 (Version 2)
Quarter: 2016Q4

REPORT INFORMATION
  Report Type: Spontaneous
  Country: US (occurrence: US)
  Receive Date: 20160907
  Receipt Date: 20161024
  Transmission Date: 20170207
  Serious: No
  Sender: FDA-Public Use
  Company Number: US-PFIZER INC-2016417477

PATIENT
  Age: 48 Year
  Sex: Male
  Weight: 78.2 kg

DRUGS (2)
  1. VIAGRA [Suspect]
     Active Substance: SILDENAFIL CITRATE
     Dosage: TWO 50 MG, ORAL, AS NEEDED, TABLET
     Route: 048
  2. VIAGRA [Suspect]
     Active Substance: SILDENAFIL CITRATE
     Dosage: PREVIOUSLY TAKING 50 MG
     Route: 048

REACTIONS (1)
  - Drug ineffective [Unknown]
